FAERS Safety Report 21228715 (Version 2)
Quarter: 2023Q1

REPORT INFORMATION
  Report Type: Spontaneous
  Country: US (occurrence: US)
  Receive Date: 20220818
  Receipt Date: 20230131
  Transmission Date: 20230417
  Serious: No
  Sender: FDA-Public Use
  Company Number: US-009507513-2207USA006064

PATIENT
  Age: 31 Year
  Sex: Female

DRUGS (1)
  1. WELIREG [Suspect]
     Active Substance: BELZUTIFAN
     Indication: Von Hippel-Lindau disease
     Dosage: 120 MILLIGRAM, ONCE A DAY
     Route: 048

REACTIONS (2)
  - Fatigue [Unknown]
  - Anaemia [Unknown]
